FAERS Safety Report 11580700 (Version 4)
Quarter: 2015Q4

REPORT INFORMATION
  Report Type: Report from Study
  Country: PT (occurrence: PT)
  Receive Date: 20150930
  Receipt Date: 20151104
  Transmission Date: 20160304
  Serious: Yes (Other)
  Sender: FDA-Public Use
  Company Number: PT-ABBVIE-15K-130-1471460-00

PATIENT
  Age: 71 Year
  Sex: Female

DRUGS (2)
  1. ARTHROTEC [Concomitant]
     Active Substance: DICLOFENAC SODIUM\MISOPROSTOL
     Indication: RHEUMATOID ARTHRITIS
     Route: 048
     Dates: start: 201510, end: 201510
  2. HUMIRA [Suspect]
     Active Substance: ADALIMUMAB
     Indication: RHEUMATOID ARTHRITIS
     Route: 058
     Dates: start: 20150323

REACTIONS (8)
  - Thrombosis [Recovered/Resolved]
  - Musculoskeletal stiffness [Recovered/Resolved]
  - Thrombosis [Recovered/Resolved]
  - Cough [Recovered/Resolved]
  - Memory impairment [Not Recovered/Not Resolved]
  - Alopecia [Recovered/Resolved]
  - Peripheral swelling [Recovered/Resolved]
  - Skin discolouration [Recovered/Resolved]

NARRATIVE: CASE EVENT DATE: 201503
